FAERS Safety Report 10657880 (Version 1)
Quarter: 2014Q4

REPORT INFORMATION
  Report Type: Spontaneous
  Country: US (occurrence: None)
  Receive Date: 20141205
  Receipt Date: 20141205
  Transmission Date: 20150529
  Serious: Yes (Other)
  Sender: FDA-Public Use
  Company Number: 163-POMAL-14091580

PATIENT
  Age: 80 Year
  Sex: Female
  Weight: 84.4 kg

DRUGS (10)
  1. OXYBUTYNIN [Concomitant]
     Active Substance: OXYBUTYNIN
  2. NAPROXEB [Concomitant]
  3. POMALYST [Suspect]
     Active Substance: POMALIDOMIDE
     Indication: PLASMA CELL MYELOMA
     Route: 048
     Dates: start: 20140117
  4. WELCHOL (COLESEVELAM HYDROCHLORIDE) (625 MILLIGRAM, TABLET) (COLESEVELAM HYDROCHLORIDE) [Concomitant]
     Active Substance: COLESEVELAM HYDROCHLORIDE
  5. LIPITOR [Concomitant]
     Active Substance: ATORVASTATIN CALCIUM
  6. GABAPENTIN. [Concomitant]
     Active Substance: GABAPENTIN
  7. PRILOSEC (OMEPRAZOLE) [Concomitant]
     Active Substance: OMEPRAZOLE MAGNESIUM
  8. CYTOXAN [Concomitant]
     Active Substance: CYCLOPHOSPHAMIDE
  9. ZOLOFT [Concomitant]
     Active Substance: SERTRALINE HYDROCHLORIDE
  10. AMPICILLIN [Concomitant]
     Active Substance: AMPICILLIN

REACTIONS (2)
  - Blood glucose increased [None]
  - Kidney infection [None]
